FAERS Safety Report 9774157 (Version 1)
Quarter: 2013Q4

REPORT INFORMATION
  Report Type: Report from Study
  Country: US (occurrence: US)
  Receive Date: 20131220
  Receipt Date: 20131220
  Transmission Date: 20140711
  Serious: Yes (Other)
  Sender: FDA-Public Use
  Company Number: US-ROCHE-1320915

PATIENT
  Sex: Female
  Weight: 22.8 kg

DRUGS (8)
  1. NUTROPIN AQ [Suspect]
     Indication: BODY HEIGHT BELOW NORMAL
     Route: 058
     Dates: end: 201303
  2. RISPERIDONE [Concomitant]
  3. ESOMEPRAZOLE [Concomitant]
  4. CALCIUM CARBONATE [Concomitant]
  5. VITAMIN D3 [Concomitant]
  6. LEVOTHYROXINE [Concomitant]
  7. FLUTICASONE FUROATE [Concomitant]
  8. CETIRIZINE HCL [Concomitant]

REACTIONS (4)
  - Therapeutic response decreased [Unknown]
  - Abnormal behaviour [Unknown]
  - Scoliosis [Unknown]
  - Increased appetite [Unknown]
